FAERS Safety Report 8300383-6 (Version None)
Quarter: 2012Q2

REPORT INFORMATION
  Report Type: 
  Country: None (occurrence: None)
  Receive Date: 20120420
  Receipt Date: 20120413
  Transmission Date: 20120825
  Serious: Yes (Other)
  Sender: FDA-Public Use
  Company Number: GB-JNJFOC-20120200611

PATIENT
  Sex: Male

DRUGS (4)
  1. SIMPONI [Suspect]
     Route: 058
     Dates: start: 20111210
  2. SIMPONI [Suspect]
     Route: 058
     Dates: start: 20111016
  3. SIMPONI [Suspect]
     Indication: RHEUMATOID ARTHRITIS
     Route: 058
     Dates: start: 20100608
  4. LEFLUNOMIDE [Concomitant]
     Dates: start: 20100225

REACTIONS (4)
  - INFECTION [None]
  - LIVER FUNCTION TEST ABNORMAL [None]
  - TENDON RUPTURE [None]
  - SYNOVIAL CYST [None]
